FAERS Safety Report 6521418-7 (Version None)
Quarter: 2009Q4

REPORT INFORMATION
  Report Type: 
  Country: None (occurrence: None)
  Receive Date: 20091230
  Receipt Date: 20091207
  Transmission Date: 20100525
  Serious: No
  Sender: FDA-Public Use
  Company Number: US-ROCHE-668323

PATIENT
  Sex: Male
  Weight: 15.9 kg

DRUGS (1)
  1. TAMIFLU [Suspect]
     Dosage: RECEIVED SINGLE DOSE OF 225 MG
     Route: 048
     Dates: start: 20091109, end: 20091109

REACTIONS (2)
  - NO ADVERSE EVENT [None]
  - OVERDOSE [None]
